FAERS Safety Report 8609088 (Version 2)
Quarter: 2012Q4

REPORT INFORMATION
  Report Type: 
  Country: US (occurrence: US)
  Receive Date: 20120611
  Receipt Date: 20121105
  Transmission Date: 20130627
  Serious: No
  Sender: FDA-Public Use
  Company Number: US-ASTRAZENECA-2012SE21763

PATIENT
  Age: 71 Year
  Sex: Female

DRUGS (1)
  1. RHINOCORT AQUA [Suspect]
     Route: 045
     Dates: start: 20120213

REACTIONS (2)
  - Seasonal allergy [Unknown]
  - Drug dose omission [Unknown]
